FAERS Safety Report 15701492 (Version 2)
Quarter: 2019Q1

REPORT INFORMATION
  Report Type: Spontaneous
  Country: JP (occurrence: JP)
  Receive Date: 20181207
  Receipt Date: 20190222
  Transmission Date: 20190417
  Serious: Yes (Other)
  Sender: FDA-Public Use
  Company Number: JP-BAXTER-2018BAX029709

PATIENT
  Age: 15 Year
  Sex: Female

DRUGS (16)
  1. CISPLATIN. [Suspect]
     Active Substance: CISPLATIN
     Indication: OSTEOSARCOMA
     Route: 065
  2. MELPHALAN. [Concomitant]
     Active Substance: MELPHALAN
     Indication: OSTEOSARCOMA
     Route: 065
  3. TRISENOX [Concomitant]
     Active Substance: ARSENIC TRIOXIDE
     Indication: OSTEOSARCOMA
  4. ASCORBIC ACID. [Concomitant]
     Active Substance: ASCORBIC ACID
     Indication: OSTEOSARCOMA
  5. HOLOXAN [Suspect]
     Active Substance: IFOSFAMIDE
     Indication: OSTEOSARCOMA
     Dosage: HIGH DOSE
     Route: 065
  6. HOLOXAN [Suspect]
     Active Substance: IFOSFAMIDE
     Indication: OSTEOSARCOMA
  7. CYCLOPHOSPHAMIDE. [Concomitant]
     Active Substance: CYCLOPHOSPHAMIDE
     Indication: OSTEOSARCOMA
     Dosage: MAC THERAPY
     Route: 065
  8. CYCLOPHOSPHAMIDE. [Concomitant]
     Active Substance: CYCLOPHOSPHAMIDE
     Indication: OSTEOSARCOMA
  9. ACTINOMYCIN D [Concomitant]
     Active Substance: DACTINOMYCIN
     Indication: OSTEOSARCOMA
  10. TRISENOX [Concomitant]
     Active Substance: ARSENIC TRIOXIDE
     Indication: OSTEOSARCOMA
     Route: 065
  11. ASCORBIC ACID. [Concomitant]
     Active Substance: ASCORBIC ACID
     Indication: OSTEOSARCOMA
     Route: 065
  12. METHOTREXATE. [Concomitant]
     Active Substance: METHOTREXATE
     Indication: OSTEOSARCOMA
     Dosage: MAC THERAPY
     Route: 065
  13. ACTINOMYCIN D [Concomitant]
     Active Substance: DACTINOMYCIN
     Indication: OSTEOSARCOMA
     Dosage: MAC THERAPY
     Route: 065
  14. CISPLATIN. [Suspect]
     Active Substance: CISPLATIN
     Indication: OSTEOSARCOMA
  15. MELPHALAN. [Concomitant]
     Active Substance: MELPHALAN
     Indication: OSTEOSARCOMA
  16. METHOTREXATE. [Concomitant]
     Active Substance: METHOTREXATE
     Indication: OSTEOSARCOMA

REACTIONS (1)
  - Fanconi syndrome [Unknown]
